FAERS Safety Report 5176926-0 (Version None)
Quarter: 2006Q4

REPORT INFORMATION
  Report Type: 
  Country: None (occurrence: None)
  Receive Date: 20061218
  Receipt Date: 20061205
  Transmission Date: 20070319
  Serious: Yes (Other)
  Sender: FDA-Public Use
  Company Number: PHBS2006JP18938

PATIENT

DRUGS (1)
  1. RITALIN [Suspect]
     Indication: DEPRESSION
     Route: 048

REACTIONS (1)
  - URINARY RETENTION [None]
